FAERS Safety Report 4535878-4 (Version None)
Quarter: 2004Q4

REPORT INFORMATION
  Report Type: 
  Country: None (occurrence: None)
  Receive Date: 20041223
  Receipt Date: 20041216
  Transmission Date: 20050328
  Serious: Yes (Hospitalization, Other)
  Sender: FDA-Public Use
  Company Number: PHEH2004US13424

PATIENT
  Age: 33 Year
  Sex: Female

DRUGS (3)
  1. ZELNORM [Suspect]
     Indication: IRRITABLE BOWEL SYNDROME
     Dosage: UNK, UNK
     Dates: start: 20041001
  2. VANCOMYCIN [Suspect]
     Indication: ENDOCARDITIS
     Dates: start: 20041101
  3. PROCRIT [Concomitant]

REACTIONS (3)
  - ENDOCARDITIS [None]
  - HYPOGLYCAEMIA [None]
  - THROMBOCYTOPENIA [None]
